FAERS Safety Report 5044858-4 (Version None)
Quarter: 2006Q3

REPORT INFORMATION
  Report Type: 
  Country: None (occurrence: None)
  Receive Date: 20060707
  Receipt Date: 20060627
  Transmission Date: 20061208
  Serious: Yes (Other)
  Sender: FDA-Public Use
  Company Number: JP-JNJFOC-20060205019

PATIENT
  Sex: Male
  Weight: 54 kg

DRUGS (10)
  1. REMICADE [Suspect]
     Dosage: 3 MG/KG
     Route: 042
  2. REMICADE [Suspect]
     Indication: RHEUMATOID ARTHRITIS
     Dosage: 3 MG/KG
     Route: 042
  3. AZELNIDIPINE [Concomitant]
     Route: 048
  4. VOLTAREN [Concomitant]
     Dosage: ROUTE=^PR^
  5. OMEPRAZOLE [Concomitant]
     Route: 048
  6. ONEALFA [Concomitant]
     Route: 048
  7. VANCOMIN [Concomitant]
     Route: 048
  8. PREDONINE [Concomitant]
  9. RHEUMATREX [Concomitant]
     Indication: RHEUMATOID ARTHRITIS
     Route: 048
  10. FOLIAMIN [Concomitant]

REACTIONS (1)
  - HYPOGLYCAEMIA [None]
